FAERS Safety Report 17836399 (Version 1)
Quarter: 2020Q2

REPORT INFORMATION
  Report Type: Other
  Country: FR (occurrence: FR)
  Receive Date: 20200528
  Receipt Date: 20200528
  Transmission Date: 20200714
  Serious: Yes (Death, Other)
  Sender: FDA-Public Use
  Company Number: FR-VALIDUS PHARMACEUTICALS LLC-FR-2020VAL000414

PATIENT

DRUGS (6)
  1. LOPINAVIR/RITONAVIR [Suspect]
     Active Substance: LOPINAVIR\RITONAVIR
     Indication: CORONAVIRUS INFECTION
     Dosage: 10 ML, QD
     Route: 048
     Dates: start: 20200313, end: 20200314
  2. NORADRENALINE                      /00127502/ [Concomitant]
     Indication: PRODUCT USED FOR UNKNOWN INDICATION
     Dosage: UNK
  3. MIDAZOLAM MYLAN [Concomitant]
     Active Substance: MIDAZOLAM HYDROCHLORIDE
     Indication: PRODUCT USED FOR UNKNOWN INDICATION
     Dosage: UNK
  4. CEFOTAXIME SODIUM [Suspect]
     Active Substance: CEFOTAXIME SODIUM
     Indication: PNEUMONIA
     Dosage: 2 G, Q8H
     Route: 041
     Dates: start: 20200313, end: 20200319
  5. ROVAMYCINE                         /00074401/ [Suspect]
     Active Substance: SPIRAMYCIN
     Indication: PNEUMONIA
     Dosage: 3 DF, QD
     Route: 041
     Dates: start: 20200313, end: 20200317
  6. SUFENTANIL CITRATE. [Concomitant]
     Active Substance: SUFENTANIL CITRATE
     Indication: PRODUCT USED FOR UNKNOWN INDICATION
     Dosage: UNK

REACTIONS (1)
  - Renal failure [Fatal]

NARRATIVE: CASE EVENT DATE: 20200314
